FAERS Safety Report 15093382 (Version 1)
Quarter: 2018Q3

REPORT INFORMATION
  Report Type: Spontaneous
  Country: IT (occurrence: IT)
  Receive Date: 20180629
  Receipt Date: 20180629
  Transmission Date: 20181010
  Serious: Yes (Other)
  Sender: FDA-Public Use
  Company Number: IT-TEVA-2018-IT-916753

PATIENT
  Age: 61 Year
  Sex: Female
  Weight: 60 kg

DRUGS (3)
  1. CARBOPLATINO TEVA 10 MG/ML [Concomitant]
     Active Substance: CARBOPLATIN
     Indication: OVARIAN CANCER
     Route: 042
  2. NIMESULIDE ALMUS 100 MG GRANULATO PER SOSPENSIONE ORALE [Concomitant]
     Indication: ARTHRALGIA
     Route: 048
  3. PACLITAXEL TEVA 6 MG/ML, CONCENTRATO PER SOLUZIONE PER INFUSIONE [Suspect]
     Active Substance: PACLITAXEL
     Indication: OVARIAN CANCER
     Dates: start: 20180126, end: 20180126

REACTIONS (1)
  - Dermatitis bullous [Recovered/Resolved with Sequelae]

NARRATIVE: CASE EVENT DATE: 20180205
